FAERS Safety Report 5837964-5 (Version None)
Quarter: 2008Q3

REPORT INFORMATION
  Report Type: 
  Country: None (occurrence: None)
  Receive Date: 20080808
  Receipt Date: 20071227
  Transmission Date: 20090109
  Serious: No
  Sender: FDA-Public Use
  Company Number: A0700596A

PATIENT
  Age: 42 Year
  Sex: Male

DRUGS (4)
  1. PAXIL [Suspect]
     Indication: DEPRESSION
     Dosage: 20MG PER DAY
     Route: 048
     Dates: start: 20041201, end: 20060601
  2. PAXIL [Suspect]
     Dosage: 40MG PER DAY
     Route: 048
     Dates: start: 20060601, end: 20071101
  3. XANAX [Suspect]
     Indication: ANXIETY
     Route: 048
     Dates: end: 20040101
  4. SLEEPING PILL [Concomitant]

REACTIONS (1)
  - ERECTILE DYSFUNCTION [None]
